FAERS Safety Report 4651481-X (Version None)
Quarter: 2005Q2

REPORT INFORMATION
  Report Type: 
  Country: None (occurrence: None)
  Receive Date: 20050502
  Receipt Date: 20050419
  Transmission Date: 20051028
  Serious: Yes (Other)
  Sender: FDA-Public Use
  Company Number: 2005063164

PATIENT
  Age: 45 Year
  Sex: Female
  Weight: 89.3586 kg

DRUGS (2)
  1. BEXTRA [Suspect]
     Indication: OSTEOARTHRITIS
     Dosage: 10 MG (10 MG, 1 IN 1 D), ORAL
     Route: 048
     Dates: start: 20010101, end: 20050101
  2. FEXOFENADINE HYDROCHLORIDE [Concomitant]

REACTIONS (3)
  - BONE DISORDER [None]
  - GINGIVAL DISORDER [None]
  - INCORRECT DOSE ADMINISTERED [None]
